FAERS Safety Report 7778292-0 (Version None)
Quarter: 2011Q3

REPORT INFORMATION
  Report Type: 
  Country: None (occurrence: None)
  Receive Date: 20110926
  Receipt Date: 20110919
  Transmission Date: 20111222
  Serious: Yes (Hospitalization)
  Sender: FDA-Public Use
  Company Number: PHHO2011CZ10395

PATIENT
  Sex: Female
  Weight: 65.2 kg

DRUGS (6)
  1. SANDOSTATIN LAR [Suspect]
     Indication: CARCINOID TUMOUR
     Dosage: 30 MG, UNK
     Dates: start: 20070504
  2. PLACEBO [Suspect]
     Indication: CARCINOID TUMOUR
     Dosage: DOUBLE BLIND
     Route: 048
     Dates: start: 20070507, end: 20110518
  3. SORBIFER DURULES [Concomitant]
     Indication: IRON DEFICIENCY ANAEMIA
     Dosage: UNK
     Dates: start: 20080407, end: 20110518
  4. ZADITEN [Concomitant]
     Indication: SEASONAL ALLERGY
     Dosage: UNK
     Dates: start: 20060101, end: 20110518
  5. RAD 666 [Suspect]
     Indication: CARCINOID TUMOUR
     Dosage: 5 MG/DAY
     Dates: start: 20100723, end: 20110518
  6. KALNORMIN [Concomitant]
     Indication: HYPOKALAEMIA
     Dosage: UNK
     Dates: start: 20110107, end: 20110518

REACTIONS (4)
  - CONSTIPATION [None]
  - FLATULENCE [None]
  - ABDOMINAL PAIN [None]
  - ABDOMINAL DISTENSION [None]
